FAERS Safety Report 20607327 (Version 1)
Quarter: 2022Q1

REPORT INFORMATION
  Report Type: Spontaneous
  Country: US (occurrence: US)
  Receive Date: 20220317
  Receipt Date: 20220317
  Transmission Date: 20220423
  Serious: No
  Sender: FDA-Public Use
  Company Number: US-OMEROS CORPORATION-2021OME00011

PATIENT
  Age: 8 Decade
  Sex: Male

DRUGS (2)
  1. OMIDRIA [Suspect]
     Active Substance: KETOROLAC\PHENYLEPHRINE
     Indication: Surgery
  2. LIDOCAINE [Suspect]
     Active Substance: LIDOCAINE

REACTIONS (2)
  - Corneal oedema [Unknown]
  - Product preparation issue [Recovered/Resolved]
